FAERS Safety Report 18907072 (Version 2)
Quarter: 2025Q4

REPORT INFORMATION
  Report Type: Spontaneous
  Country: US (occurrence: US)
  Receive Date: 20210218
  Receipt Date: 20251125
  Transmission Date: 20260118
  Serious: Yes (Hospitalization, Other)
  Sender: AUROBINDO
  Company Number: US-APOTEX-2010AP001707

PATIENT
  Age: 52 Year
  Sex: Female

DRUGS (17)
  1. RITONAVIR [Interacting]
     Active Substance: RITONAVIR
     Indication: Product used for unknown indication
     Dosage: UNK
     Route: 065
  2. CLONIDINE [Suspect]
     Active Substance: CLONIDINE
     Indication: Product used for unknown indication
     Dosage: 0.2 MILLIGRAM, 3 TIMES A DAY
     Route: 065
  3. CLONIDINE [Suspect]
     Active Substance: CLONIDINE
     Dosage: 0.2 MILLIGRAM
  4. CLONIDINE [Suspect]
     Active Substance: CLONIDINE
     Dosage: 0.1 MILLIGRAM
     Route: 065
  5. METOPROLOL [Suspect]
     Active Substance: METOPROLOL
     Indication: Product used for unknown indication
     Dosage: 200 MILLIGRAM, TWO TIMES A DAY
     Route: 065
  6. METOPROLOL [Suspect]
     Active Substance: METOPROLOL
     Dosage: 100 MILLIGRAM, TWO TIMES A DAY
     Route: 065
  7. METOPROLOL [Suspect]
     Active Substance: METOPROLOL
     Dosage: 200 MILLIGRAM
     Route: 065
  8. LABETALOL [Suspect]
     Active Substance: LABETALOL
     Indication: Product used for unknown indication
     Dosage: 20 MILLIGRAM
  9. NIFEDIPINE [Suspect]
     Active Substance: NIFEDIPINE
     Indication: Product used for unknown indication
     Dosage: 60 MILLIGRAM
  10. HYDRALAZINE [Suspect]
     Active Substance: HYDRALAZINE HYDROCHLORIDE
     Indication: Product used for unknown indication
     Dosage: 10 MILLIGRAM, 3 TIMES A DAY
     Route: 065
  11. HYDRALAZINE [Suspect]
     Active Substance: HYDRALAZINE HYDROCHLORIDE
     Dosage: 10 MILLIGRAM
     Route: 065
  12. HYDRALAZINE [Suspect]
     Active Substance: HYDRALAZINE HYDROCHLORIDE
     Dosage: 10 MILLIGRAM, 3 TIMES A DAY
  13. HYDRALAZINE [Suspect]
     Active Substance: HYDRALAZINE HYDROCHLORIDE
     Dosage: 10 MILLIGRAM
     Route: 065
  14. LOPINAVIR [Interacting]
     Active Substance: LOPINAVIR
     Indication: Product used for unknown indication
     Dosage: UNK
     Route: 065
  15. DILTIAZEM HYDROCHLORIDE [Interacting]
     Active Substance: DILTIAZEM HYDROCHLORIDE
     Indication: Product used for unknown indication
     Dosage: 180 MILLIGRAM
  16. DILTIAZEM HYDROCHLORIDE [Interacting]
     Active Substance: DILTIAZEM HYDROCHLORIDE
     Dosage: 180 MILLIGRAM
     Route: 065
  17. LOPINAVIR\RITONAVIR [Suspect]
     Active Substance: LOPINAVIR\RITONAVIR
     Indication: Product used for unknown indication
     Dosage: 200/50 MG TABLETS TWICE DAILY
     Route: 065

REACTIONS (8)
  - Hypotension [Recovered/Resolved]
  - Confusional state [Recovered/Resolved]
  - Atrioventricular block first degree [Recovered/Resolved]
  - Coma [Recovered/Resolved]
  - Electrocardiogram PR prolongation [Recovered/Resolved]
  - Hypertensive urgency [Recovered/Resolved]
  - Drug interaction [Recovered/Resolved]
  - Overdose [Recovered/Resolved]
